FAERS Safety Report 5292291-2 (Version None)
Quarter: 2007Q2

REPORT INFORMATION
  Report Type: 
  Country: None (occurrence: None)
  Receive Date: 20070410
  Receipt Date: 20070329
  Transmission Date: 20071010
  Serious: Yes (Other)
  Sender: FDA-Public Use
  Company Number: AU-SANOFI-SYNTHELABO-A01200703477

PATIENT
  Sex: Male

DRUGS (3)
  1. ANXIOLYTIC [Concomitant]
     Indication: ANXIETY
     Dosage: UNK
     Route: 065
  2. STILNOX [Suspect]
     Indication: SLEEP DISORDER
     Dosage: UNK
     Route: 048
  3. ANTIDEPRESSANT NOS [Concomitant]
     Indication: DEPRESSION
     Dosage: UNK
     Route: 065

REACTIONS (2)
  - AGGRESSION [None]
  - PHYSICAL ASSAULT [None]
